FAERS Safety Report 12632598 (Version 2)
Quarter: 2016Q3

REPORT INFORMATION
  Report Type: Spontaneous
  Country: US (occurrence: US)
  Receive Date: 20160808
  Receipt Date: 20160808
  Transmission Date: 20161109
  Serious: No
  Sender: FDA-Public Use
  Company Number: US-BEH-2015056192

PATIENT
  Sex: Male
  Weight: 18 kg

DRUGS (13)
  1. HIZENTRA [Suspect]
     Active Substance: HUMAN IMMUNOGLOBULIN G
     Indication: HYPOGAMMAGLOBULINAEMIA
     Route: 058
  2. SINGULAIR [Concomitant]
     Active Substance: MONTELUKAST SODIUM
  3. ZYRTEC [Concomitant]
     Active Substance: CETIRIZINE HYDROCHLORIDE
  4. MIRALAX [Concomitant]
     Active Substance: POLYETHYLENE GLYCOL 3350
  5. FIBER TABS [Concomitant]
     Active Substance: CALCIUM POLYCARBOPHIL
  6. LIDOCAINE. [Concomitant]
     Active Substance: LIDOCAINE
  7. LIDOCAINE/PRILOCAINE [Concomitant]
     Active Substance: LIDOCAINE\PRILOCAINE
  8. HIZENTRA [Suspect]
     Active Substance: HUMAN IMMUNOGLOBULIN G
     Route: 058
  9. RITALIN [Concomitant]
     Active Substance: METHYLPHENIDATE HYDROCHLORIDE
  10. FLONASE [Concomitant]
     Active Substance: FLUTICASONE PROPIONATE
  11. MULTIPLE VITAMIN [Concomitant]
     Active Substance: VITAMINS
  12. EPIPEN JR [Concomitant]
     Active Substance: EPINEPHRINE
  13. MELATONIN [Concomitant]
     Active Substance: MELATONIN

REACTIONS (2)
  - Infusion site extravasation [Unknown]
  - Ear infection [Unknown]
